FAERS Safety Report 17576846 (Version 1)
Quarter: 2020Q1

REPORT INFORMATION
  Report Type: Spontaneous
  Country: US (occurrence: US)
  Receive Date: 20200319
  Receipt Date: 20200319
  Transmission Date: 20200409
  Serious: Yes (Other)
  Sender: FDA-Public Use
  Company Number: None

PATIENT
  Age: 71 Year
  Sex: Male
  Weight: 175.1 kg

DRUGS (1)
  1. PIOGLITAZONE (PIOGLITAZONE HCL 30MG TAB) [Suspect]
     Active Substance: PIOGLITAZONE HYDROCHLORIDE
     Indication: DIABETES MELLITUS
     Dosage: ?          OTHER DOSE:30;?
     Dates: start: 20170802, end: 20180717

REACTIONS (2)
  - Macular oedema [None]
  - Oedema peripheral [None]

NARRATIVE: CASE EVENT DATE: 20180717
